FAERS Safety Report 7302911-6 (Version None)
Quarter: 2011Q1

REPORT INFORMATION
  Report Type: 
  Country: None (occurrence: None)
  Receive Date: 20110218
  Receipt Date: 20110209
  Transmission Date: 20110831
  Serious: Yes (Other)
  Sender: FDA-Public Use
  Company Number: HR-ASTRAZENECA-2011SE07674

PATIENT
  Age: 69 Year
  Sex: Female

DRUGS (3)
  1. LODOZ [Concomitant]
     Route: 048
     Dates: start: 20090526
  2. CRESTOR [Suspect]
     Indication: HYPERLIPIDAEMIA
     Route: 048
     Dates: start: 20101218
  3. AMLOPIN [Concomitant]
     Route: 048
     Dates: start: 20090526

REACTIONS (3)
  - MUSCLE DISORDER [None]
  - PYREXIA [None]
  - CHOKING SENSATION [None]
